FAERS Safety Report 9822896 (Version 3)
Quarter: 2014Q1

REPORT INFORMATION
  Report Type: Report from Study
  Country: US (occurrence: US)
  Receive Date: 20140116
  Receipt Date: 20140222
  Transmission Date: 20141002
  Serious: Yes (Death, Hospitalization)
  Sender: FDA-Public Use
  Company Number: US-MERCK-1401USA003714

PATIENT
  Age: 42 Year
  Sex: Male
  Weight: 96.7 kg

DRUGS (9)
  1. VORINOSTAT [Suspect]
     Indication: GLIOBLASTOMA
     Dosage: 400 MG, 7 DAYS ON/ 7 DAYS OFF
     Route: 048
     Dates: start: 20131211, end: 20131217
  2. VORINOSTAT [Suspect]
     Dosage: 400 MG, 7 DAYS ON/ 7 DAYS OFF
     Dates: start: 20131226, end: 20140101
  3. AVASTIN (ATORVASTATIN CALCIUM) [Suspect]
     Dosage: 10 MG/KG, Q2 WEEK
     Route: 042
     Dates: start: 20131211, end: 20131226
  4. DECADRON ELIXIR [Concomitant]
     Dosage: 4 MG, BID
  5. PREVACID [Concomitant]
     Dosage: 30 MG, QD
  6. SODIUM CHLORIDE [Concomitant]
     Dosage: 1 G, QD
  7. COMPAZINE [Concomitant]
     Dosage: 10 MG, Q6H AS NEEDED
  8. ONDANSETRON HYDROCHLORIDE [Concomitant]
     Dosage: 8 MG, Q8H AS NEEDED
  9. NYSTATIN [Concomitant]
     Dosage: 100,000 UNITS/ML 4XDAY

REACTIONS (7)
  - Confusional state [Unknown]
  - Muscular weakness [Unknown]
  - Death [Fatal]
  - Hyperglycaemia [Unknown]
  - Constipation [Unknown]
  - Asthenia [Unknown]
  - Apnoea [Fatal]
